FAERS Safety Report 5043904-1 (Version None)
Quarter: 2006Q2

REPORT INFORMATION
  Report Type: 
  Country: None (occurrence: None)
  Receive Date: 20060629
  Receipt Date: 20060619
  Transmission Date: 20061013
  Serious: Yes (Hospitalization)
  Sender: FDA-Public Use
  Company Number: 06-0055PO FU1

PATIENT
  Age: 32 Year
  Sex: Male

DRUGS (6)
  1. PONTAL (MEFENAMIC ACID) 250 MG [Suspect]
     Indication: HEADACHE
     Dosage: 8000 MG, ORAL
     Route: 048
  2. RISPERDAL [Concomitant]
  3. AKINETON [Concomitant]
  4. LEVOTOMINE [Concomitant]
  5. DEPAKENE [Concomitant]
  6. BUFFERIN [Concomitant]

REACTIONS (2)
  - CONVULSION [None]
  - INCORRECT DOSE ADMINISTERED [None]
